FAERS Safety Report 8802667 (Version 1)
Quarter: 2012Q4

REPORT INFORMATION
  Report Type: 
  Country: US (occurrence: US)
  Receive Date: 20120921
  Receipt Date: 20120921
  Transmission Date: 20130627
  Serious: Yes (Other)
  Sender: FDA-Public Use
  Company Number: US-PFIZER INC-2012232087

PATIENT
  Age: 65 Year
  Sex: Female
  Weight: 40.82 kg

DRUGS (4)
  1. CLINDAMYCIN PHOSPHATE [Suspect]
     Indication: GINGIVAL INFECTION
     Dosage: 150 mg one tablet, UNK
     Route: 048
     Dates: start: 20120909, end: 20120909
  2. CLINDAMYCIN PHOSPHATE [Suspect]
     Dosage: 150 mg three tablets, UNK
     Dates: start: 20120910, end: 20120910
  3. COPAXONE [Concomitant]
     Indication: MULTIPLE SCLEROSIS
     Dosage: UNK
  4. LIPITOR [Concomitant]
     Indication: BLOOD CHOLESTEROL INCREASED
     Dosage: 20 mg, daily

REACTIONS (2)
  - Rash generalised [Recovering/Resolving]
  - Headache [Recovered/Resolved]
